FAERS Safety Report 6282128-7 (Version None)
Quarter: 2009Q3

REPORT INFORMATION
  Report Type: 
  Country: None (occurrence: None)
  Receive Date: 20090724
  Receipt Date: 20090716
  Transmission Date: 20100115
  Serious: Yes (Life-Threatening, Hospitalization)
  Sender: FDA-Public Use
  Company Number: TH-ABBOTT-09P-155-0560383-00

PATIENT
  Sex: Male
  Weight: 58 kg

DRUGS (12)
  1. RITONAVIR SOFT GELATIN CAPSULES [Suspect]
     Indication: HIV INFECTION
     Route: 048
     Dates: start: 20080417, end: 20090320
  2. RITONAVIR SOFT GELATIN CAPSULES [Suspect]
     Dates: start: 20090422
  3. PIOGLITAZONE HCL [Suspect]
     Indication: DIABETES MELLITUS
     Route: 048
     Dates: start: 20090104, end: 20090227
  4. DARUNAVIR [Concomitant]
     Indication: HIV INFECTION
     Route: 048
     Dates: start: 20080417
  5. TRUVADA [Concomitant]
     Indication: HIV INFECTION
     Route: 048
     Dates: start: 20081222
  6. TMC-114 [Concomitant]
     Indication: HIV INFECTION
     Dates: start: 20080417, end: 20090320
  7. TMC-114 [Concomitant]
     Dates: start: 20090422
  8. METFORMIN HCL [Concomitant]
     Indication: DIABETES MELLITUS
     Dates: start: 20080507
  9. METFORMIN HCL [Concomitant]
  10. ENALAPRIL MALEATE [Concomitant]
  11. GLIPIZIDE [Concomitant]
     Indication: DRUG USE FOR UNKNOWN INDICATION
     Dates: start: 20080507
  12. FELODIPINE [Concomitant]
     Indication: DRUG USE FOR UNKNOWN INDICATION

REACTIONS (4)
  - ATRIOVENTRICULAR BLOCK FIRST DEGREE [None]
  - CARDIAC FAILURE CONGESTIVE [None]
  - HEPATITIS [None]
  - SINUS BRADYCARDIA [None]
